FAERS Safety Report 20607043 (Version 1)
Quarter: 2022Q1

REPORT INFORMATION
  Report Type: Spontaneous
  Country: US (occurrence: US)
  Receive Date: 20220317
  Receipt Date: 20220317
  Transmission Date: 20220424
  Serious: No
  Sender: FDA-Public Use
  Company Number: US-PFIZER INC-2021771320

PATIENT
  Age: 55 Year
  Sex: Female
  Weight: 84.807 kg

DRUGS (2)
  1. SUTENT [Suspect]
     Active Substance: SUNITINIB MALATE
     Indication: Renal cancer
     Dosage: 50 MG, 1X/DAY (1 CAPSULE EVERY DAY)
     Route: 048
     Dates: start: 20210516
  2. SUTENT [Suspect]
     Active Substance: SUNITINIB MALATE
     Dosage: 37.5 MG, DAILY (1 CAPSULE DAILY)
     Route: 048
     Dates: start: 20210627

REACTIONS (4)
  - Decreased appetite [Unknown]
  - Ageusia [Unknown]
  - Stomatitis [Unknown]
  - Nausea [Unknown]
